FAERS Safety Report 7473961-4 (Version None)
Quarter: 2011Q2

REPORT INFORMATION
  Report Type: 
  Country: None (occurrence: None)
  Receive Date: 20110511
  Receipt Date: 20091120
  Transmission Date: 20111010
  Serious: Yes (Hospitalization, Other)
  Sender: FDA-Public Use
  Company Number: US-BAYER-200940898NA

PATIENT
  Age: 53 Year
  Sex: Female
  Weight: 90.4 kg

DRUGS (14)
  1. TRASYLOL [Suspect]
     Indication: CORONARY ARTERY BYPASS
     Dosage: UNK
     Route: 042
     Dates: start: 20011004
  2. PULMICORT [Concomitant]
     Dosage: 200 MG 1 PUFF AS NEEDED, LONG TERM
  3. COREG [Concomitant]
     Dosage: 12.5 MG, QD, LONG TERM
     Route: 048
  4. LANOXIN [Concomitant]
     Dosage: 0.125 MG, QD, LONG TERM
     Route: 048
  5. VANCOMYCIN [Concomitant]
     Dosage: 1 G, UNK
     Route: 042
  6. MORPHINE [Concomitant]
     Dosage: 4 MG,
     Route: 030
     Dates: start: 20010918
  7. SCOPOLAMINE [Concomitant]
     Dosage: 0.3 MG, UNK
     Route: 030
     Dates: start: 20010918
  8. VALIUM [Concomitant]
     Dosage: UNK UNK, PRN, LONG TERM
     Route: 048
  9. ACETYLSALICYLIC ACID SRT [Concomitant]
     Dosage: 325 MG, QD, LONG TERM
     Route: 048
  10. LOTENSIN [Concomitant]
     Dosage: UNK
     Route: 048
     Dates: start: 19950101, end: 20010101
  11. AVANDIA [Concomitant]
     Dosage: 4 MG, LONG TERM
  12. LASIX [Concomitant]
     Dosage: 40 MG, QD, LONG TERM
  13. ZOCOR [Concomitant]
     Dosage: 40 MG, QD, LONG TERM
     Route: 048
  14. DIOVAN HCT [Concomitant]
     Dosage: 80/12.5MG, LONG TERM

REACTIONS (11)
  - DISABILITY [None]
  - ANXIETY [None]
  - ANHEDONIA [None]
  - RENAL INJURY [None]
  - INJURY [None]
  - FEAR [None]
  - PAIN [None]
  - MULTI-ORGAN FAILURE [None]
  - RENAL FAILURE [None]
  - UNEVALUABLE EVENT [None]
  - DEPRESSION [None]
